FAERS Safety Report 11398127 (Version 1)
Quarter: 2015Q3

REPORT INFORMATION
  Report Type: Spontaneous
  Country: US (occurrence: US)
  Receive Date: 20150820
  Receipt Date: 20150820
  Transmission Date: 20151125
  Serious: No
  Sender: FDA-Public Use
  Company Number: PHEH2015US015555

PATIENT
  Sex: Female

DRUGS (3)
  1. DIOVAN [Suspect]
     Active Substance: VALSARTAN
     Indication: PRODUCT USED FOR UNKNOWN INDICATION
     Route: 065
  2. TEKTURNA [Suspect]
     Active Substance: ALISKIREN HEMIFUMARATE
     Indication: PRODUCT USED FOR UNKNOWN INDICATION
     Dosage: 2 DF, QD
     Route: 065
  3. AMTURNIDE [Suspect]
     Active Substance: ALISKIREN HEMIFUMARATE\AMLODIPINE BESYLATE\HYDROCHLOROTHIAZIDE
     Indication: PRODUCT USED FOR UNKNOWN INDICATION
     Dosage: 300 MG, QD
     Route: 065

REACTIONS (11)
  - Tongue haemorrhage [Unknown]
  - Dysphonia [Unknown]
  - Urticaria [Unknown]
  - Contrast media allergy [Unknown]
  - Memory impairment [Unknown]
  - Rash [Unknown]
  - Gingival swelling [Unknown]
  - Hypersensitivity [Unknown]
  - Drug intolerance [Unknown]
  - Pruritus [Unknown]
  - Plicated tongue [Unknown]
